FAERS Safety Report 19581255 (Version 1)
Quarter: 2021Q3

REPORT INFORMATION
  Report Type: Spontaneous
  Country: US (occurrence: US)
  Receive Date: 20210719
  Receipt Date: 20210719
  Transmission Date: 20211014
  Serious: No
  Sender: FDA-Public Use
  Company Number: None

PATIENT
  Age: 68 Year
  Sex: Female
  Weight: 47.17 kg

DRUGS (15)
  1. B6 [Concomitant]
     Active Substance: PYRIDOXINE HYDROCHLORIDE
  2. NIACIN. [Concomitant]
     Active Substance: NIACIN
  3. LIQUID VITAMIN D [Concomitant]
  4. BIOTIN [Concomitant]
     Active Substance: BIOTIN
  5. ACYCLOVIR. [Concomitant]
     Active Substance: ACYCLOVIR
  6. UBIQUINOL [Concomitant]
     Active Substance: UBIQUINOL
  7. VITAMIN B12 [Concomitant]
     Active Substance: CYANOCOBALAMIN
  8. CALCIUM [Concomitant]
     Active Substance: CALCIUM
  9. MAGNESIUM [Concomitant]
     Active Substance: MAGNESIUM
  10. FAMOTIDINE. [Concomitant]
     Active Substance: FAMOTIDINE
  11. ASHWAGANDHA [Concomitant]
     Active Substance: HERBALS
  12. EPIPEN [Concomitant]
     Active Substance: EPINEPHRINE
  13. TURMERIC [Concomitant]
     Active Substance: HERBALS\TURMERIC
  14. LIQUIPLEX [Concomitant]
  15. LEXISCAN [Suspect]
     Active Substance: REGADENOSON

REACTIONS (4)
  - Costochondritis [None]
  - Chest pain [None]
  - Dizziness [None]
  - Discomfort [None]

NARRATIVE: CASE EVENT DATE: 20210710
